FAERS Safety Report 19458289 (Version 1)
Quarter: 2021Q2

REPORT INFORMATION
  Report Type: Spontaneous
  Country: US (occurrence: US)
  Receive Date: 20210624
  Receipt Date: 20210624
  Transmission Date: 20210717
  Serious: No
  Sender: FDA-Public Use
  Company Number: None

PATIENT
  Age: 81 Year
  Sex: Female
  Weight: 63 kg

DRUGS (3)
  1. BSS PLUS [Concomitant]
     Active Substance: CALCIUM CHLORIDE\DEXTROSE\MAGNESIUM CHLORIDE\OXIGLUTATIONE\POTASSIUM CHLORIDE\SODIUM BICARBONATE\SODIUM CHLORIDE\SODIUM PHOSPHATE\SODIUM PHOSPHATE, DIBASIC
     Dates: start: 20210621, end: 20210621
  2. LIDOCAINE 4% [Concomitant]
     Active Substance: LIDOCAINE
     Dates: start: 20210621, end: 20210621
  3. EPINEPHRINE INJECTION, USP [Suspect]
     Active Substance: EPINEPHRINE
     Indication: CATARACT
     Dosage: OTHER FREQUENCY:ONCE;?
     Route: 031
     Dates: start: 20210621, end: 20210621

REACTIONS (2)
  - Cataract operation complication [None]
  - Corneal oedema [None]

NARRATIVE: CASE EVENT DATE: 20210621
